FAERS Safety Report 6472176 (Version 4)
Quarter: 2012Q4

REPORT INFORMATION
  Report Type: Spontaneous
  Country: JP (occurrence: None)
  Receive Date: 20071109
  Receipt Date: 20121109
  Transmission Date: 20130627
  Serious: Yes (Other)
  Sender: FDA-Public Use
  Company Number: 2007JP004980

PATIENT
  Age: 67 Year
  Sex: Female
  Weight: 43.8 kg

DRUGS (4)
  1. TACROLIMUS [Suspect]
     Indication: RHEUMATOID ARTHRITIS
     Dosage: 1.5 MG, UID/QD, ORAL
     Route: 048
     Dates: start: 20070222
  2. PREDNISONE [Concomitant]
  3. RABEPRAZOLE SODIUM [Concomitant]
  4. AMOBAN (ZOPICLONE) [Concomitant]

REACTIONS (6)
  - HYPOGLYCAEMIC COMA [None]
  - HAEMATOCRIT DECREASED [None]
  - METABOLIC ACIDOSIS [None]
  - ALCOHOL USE [None]
  - LOSS OF CONSCIOUSNESS [None]
  - ALCOHOLIC LIVER DISEASE [None]
